FAERS Safety Report 7908370 (Version 20)
Quarter: 2020Q4

REPORT INFORMATION
  Report Type: Other
  Country: CA (occurrence: CA)
  Receive Date: 20110421
  Receipt Date: 20201022
  Transmission Date: 20210114
  Serious: Yes (Other)
  Sender: FDA-Public Use
  Company Number: CA-ROCHE-771598

PATIENT
  Age: 41 Year
  Sex: Female
  Weight: 80 kg

DRUGS (10)
  1. ACTEMRA [Suspect]
     Active Substance: TOCILIZUMAB
     Route: 042
     Dates: start: 20150402
  2. ACTEMRA [Suspect]
     Active Substance: TOCILIZUMAB
     Route: 042
     Dates: start: 20140714
  3. ACTEMRA [Suspect]
     Active Substance: TOCILIZUMAB
     Route: 042
     Dates: start: 20141211
  4. ACTEMRA [Suspect]
     Active Substance: TOCILIZUMAB
     Route: 042
     Dates: start: 20130704
  5. TYLENOL [Concomitant]
     Active Substance: ACETAMINOPHEN
     Dosage: AS NEEDED
  6. ACTEMRA [Suspect]
     Active Substance: TOCILIZUMAB
     Route: 042
     Dates: start: 20131205
  7. ACTEMRA [Suspect]
     Active Substance: TOCILIZUMAB
     Route: 042
     Dates: start: 20140808
  8. ACTEMRA [Suspect]
     Active Substance: TOCILIZUMAB
     Indication: RHEUMATOID ARTHRITIS
     Dosage: TRIAL (WA19923)
     Route: 042
     Dates: start: 200801, end: 20101014
  9. ACTEMRA [Suspect]
     Active Substance: TOCILIZUMAB
     Dosage: (1ST RPAP DOSE)
     Route: 042
     Dates: start: 20101110
  10. ACTEMRA [Suspect]
     Active Substance: TOCILIZUMAB
     Route: 042
     Dates: start: 20110106

REACTIONS (13)
  - Weight increased [Unknown]
  - Incision site impaired healing [Recovered/Resolved]
  - Extremity necrosis [Recovered/Resolved]
  - Rheumatoid arthritis [Not Recovered/Not Resolved]
  - Therapeutic response decreased [Not Recovered/Not Resolved]
  - Joint stiffness [Unknown]
  - Weight decreased [Not Recovered/Not Resolved]
  - Therapeutic product effect incomplete [Unknown]
  - Foot operation [Unknown]
  - White blood cell count decreased [Unknown]
  - Therapeutic response decreased [Unknown]
  - Pain [Unknown]
  - Arthralgia [Unknown]

NARRATIVE: CASE EVENT DATE: 20110211
